FAERS Safety Report 6275083-7 (Version None)
Quarter: 2009Q3

REPORT INFORMATION
  Report Type: 
  Country: None (occurrence: None)
  Receive Date: 20090721
  Receipt Date: 20090709
  Transmission Date: 20100115
  Serious: Yes (Disabling)
  Sender: FDA-Public Use
  Company Number: PHEH2008US08054

PATIENT
  Sex: Male

DRUGS (6)
  1. ZOMETA [Suspect]
     Dosage: UNK, UNK
     Dates: end: 20070501
  2. LUPRON [Concomitant]
  3. HYDROCODONE [Concomitant]
  4. PEPCID [Concomitant]
  5. CASODEX [Concomitant]
  6. LORAZEPAM [Concomitant]

REACTIONS (10)
  - ANHEDONIA [None]
  - ANXIETY [None]
  - BILIARY CYST [None]
  - BLADDER CALCULUS REMOVAL [None]
  - BLOOD URINE PRESENT [None]
  - HOT FLUSH [None]
  - INJURY [None]
  - MENTAL DISORDER [None]
  - OSTEONECROSIS [None]
  - PAIN [None]
